FAERS Safety Report 20429912 (Version 1)
Quarter: 2022Q1

REPORT INFORMATION
  Report Type: Report from Study
  Country: US (occurrence: US)
  Receive Date: 20220204
  Receipt Date: 20220204
  Transmission Date: 20220423
  Serious: Yes (Life-Threatening, Hospitalization)
  Sender: FDA-Public Use
  Company Number: US-SERVIER-S19002659

PATIENT

DRUGS (13)
  1. ONCASPAR [Suspect]
     Active Substance: PEGASPARGASE
     Indication: Acute lymphocytic leukaemia
     Dosage: 2500 IU/M2, EVERY 2 WEEKS UNTIL 15 TOTAL POST-INDUCTION DOSES
     Route: 042
     Dates: start: 20180621, end: 20190211
  2. ONCASPAR [Suspect]
     Active Substance: PEGASPARGASE
     Dosage: 2500 IU/M2, EVERY 2 WEEKS UNTIL 15 TOTAL POST-INDUCTION DOSES
     Route: 042
     Dates: start: 20190226
  3. MERCAPTOPURINE [Suspect]
     Active Substance: MERCAPTOPURINE
     Indication: Acute lymphocytic leukaemia
     Dosage: 50 MG/M2, ONE DOSE, ON DAYS 1-14 OF EACH 3-WEEKS CYCLE
     Route: 048
     Dates: start: 20180720, end: 20190217
  4. MERCAPTOPURINE [Suspect]
     Active Substance: MERCAPTOPURINE
     Dosage: 50 MG/M2, ONE DOSE, ON DAYS 1-14 OF EACH 3-WEEKS CYCLE
     Route: 048
     Dates: start: 20190226
  5. VINCRISTINE SULFATE [Suspect]
     Active Substance: VINCRISTINE SULFATE
     Indication: Acute lymphocytic leukaemia
     Dosage: 2 MG/M2, EVERY 3 WEEKS
     Route: 042
     Dates: start: 20180619, end: 20190204
  6. VINCRISTINE SULFATE [Suspect]
     Active Substance: VINCRISTINE SULFATE
     Dosage: 2 MG/M2, EVERY 3 WEEKS
     Route: 042
     Dates: start: 20190226
  7. DEXAMETHASONE [Suspect]
     Active Substance: DEXAMETHASONE
     Indication: Acute lymphocytic leukaemia
     Dosage: 6 MG/M2, DAILY, ON DAYS 1-5 EACH 3-WEEKS CYCLE
     Route: 048
     Dates: start: 20180616, end: 20190208
  8. DEXAMETHASONE [Suspect]
     Active Substance: DEXAMETHASONE
     Dosage: 6 MG/M2, DAILY, ON DAYS 1-5 EACH 3-WEEKS CYCLE
     Route: 048
     Dates: start: 20190226
  9. DEXAMETHASONE [Suspect]
     Active Substance: DEXAMETHASONE
     Dosage: 15 MG, EVERY 9 WEEKS
     Route: 037
     Dates: start: 20180703, end: 20190115
  10. METHOTREXATE [Suspect]
     Active Substance: METHOTREXATE
     Indication: Acute lymphocytic leukaemia
     Dosage: 30 MG/M2, ONE DOSE, ON DAYS 1,8 AND 15 OF EACH 3-WEEKS CYCLE
     Route: 042
     Dates: start: 20180917, end: 20190218
  11. METHOTREXATE [Suspect]
     Active Substance: METHOTREXATE
     Dosage: 30 MG/M2, ONE DOSE, ON DAYS 1,8 AND 15 OF EACH 3-WEEKS CYCLE
     Route: 042
     Dates: start: 20190226, end: 20190218
  12. METHOTREXATE [Suspect]
     Active Substance: METHOTREXATE
     Dosage: 12 MG, EVERY 9 WEEKS
     Route: 037
     Dates: start: 20180703, end: 20190115
  13. CYTARABINE [Suspect]
     Active Substance: CYTARABINE
     Indication: Acute lymphocytic leukaemia
     Dosage: 40 MG, EVERY 9 WEEKS
     Route: 037
     Dates: start: 20180703, end: 20190115

REACTIONS (1)
  - Device related infection [Recovered/Resolved]

NARRATIVE: CASE EVENT DATE: 20190225
